FAERS Safety Report 6986102-4 (Version None)
Quarter: 2010Q3

REPORT INFORMATION
  Report Type: 
  Country: None (occurrence: None)
  Receive Date: 20100915
  Receipt Date: 20100907
  Transmission Date: 20110219
  Serious: Yes (Other)
  Sender: FDA-Public Use
  Company Number: FR-GENENTECH-303729

PATIENT
  Age: 64 Year
  Sex: Female

DRUGS (7)
  1. RITUXIMAB [Suspect]
     Indication: WEGENER'S GRANULOMATOSIS
     Dosage: 1000 MG, DAYS 1+15
     Route: 065
     Dates: start: 20070401
  2. RITUXIMAB [Suspect]
     Dosage: 375 MG/M2, UNK
     Route: 065
     Dates: start: 20081101
  3. MYCOPHENOLATE MOFETIL [Suspect]
     Indication: PRODUCT USED FOR UNKNOWN INDICATION
     Dosage: UNK
     Route: 065
  4. CYCLOPHOSPHAMIDE [Concomitant]
     Indication: PRODUCT USED FOR UNKNOWN INDICATION
     Dosage: 600 MG/M2, UNK
     Route: 042
  5. AZATHIOPRINE [Concomitant]
     Indication: PRODUCT USED FOR UNKNOWN INDICATION
     Dosage: UNK
  6. METHOTREXATE [Concomitant]
     Indication: PRODUCT USED FOR UNKNOWN INDICATION
     Dosage: 20 MG, UNK
  7. METHOTREXATE [Concomitant]
     Dosage: 12.5 MG, UNK

REACTIONS (2)
  - MACULAR OEDEMA [None]
  - WEGENER'S GRANULOMATOSIS [None]
